FAERS Safety Report 6136066-0 (Version None)
Quarter: 2009Q1

REPORT INFORMATION
  Report Type: 
  Country: None (occurrence: None)
  Receive Date: 20090325
  Receipt Date: 20090308
  Transmission Date: 20090719
  Serious: Yes (Other)
  Sender: FDA-Public Use
  Company Number: 2007S1006884

PATIENT
  Age: 65 Year
  Sex: Female
  Weight: 72.1219 kg

DRUGS (15)
  1. PHOSPHOSODA FLAVOR NOT SPECIFIED [Suspect]
     Indication: COLONOSCOPY
     Dosage: 90 ML: TOTAL; PO
     Route: 048
     Dates: start: 20060314, end: 20060315
  2. LISINOPRIL [Concomitant]
  3. ADVIL [Concomitant]
  4. MULTI-VIT [Concomitant]
  5. LEVOTHYROXINE SODIUM [Concomitant]
  6. ASPIRIN [Concomitant]
  7. MENEST [Concomitant]
  8. CALCIUM [Concomitant]
  9. NIACIN [Concomitant]
  10. ASCORBIC ACID [Concomitant]
  11. FOLIC ACID [Concomitant]
  12. VITAMIN B-12 [Concomitant]
  13. VITAMIN E [Concomitant]
  14. SELENIUM [Concomitant]
  15. GLUCOSAMINE/MSM [Concomitant]

REACTIONS (2)
  - RENAL FAILURE CHRONIC [None]
  - RENAL INJURY [None]
